FAERS Safety Report 13805237 (Version 1)
Quarter: 2017Q3

REPORT INFORMATION
  Report Type: Spontaneous
  Country: US (occurrence: US)
  Receive Date: 20170728
  Receipt Date: 20170728
  Transmission Date: 20171127
  Serious: Yes (Hospitalization, Other)
  Sender: FDA-Public Use
  Company Number: US-APOTEX-2017AP016015

PATIENT
  Age: 32 Year
  Sex: Male

DRUGS (2)
  1. FAMOTIDINE TABLETS USP [Suspect]
     Active Substance: FAMOTIDINE
     Indication: PRODUCT USED FOR UNKNOWN INDICATION
     Dosage: MULTIPLE DOSES DAILY
     Route: 065
  2. LOPERAMIDE [Suspect]
     Active Substance: LOPERAMIDE
     Indication: PRODUCT USED FOR UNKNOWN INDICATION
     Dosage: 200 MG, QD
     Route: 065

REACTIONS (8)
  - Electrocardiogram QT prolonged [Recovered/Resolved]
  - Drug interaction [Recovered/Resolved]
  - Defect conduction intraventricular [Recovered/Resolved]
  - Ventricular tachycardia [Recovered/Resolved]
  - Palpitations [Recovered/Resolved]
  - Atrioventricular block first degree [Recovered/Resolved]
  - Syncope [Recovered/Resolved]
  - Drug level increased [Recovered/Resolved]
